FAERS Safety Report 13084528 (Version 5)
Quarter: 2017Q4

REPORT INFORMATION
  Report Type: Report from Study
  Country: JP (occurrence: JP)
  Receive Date: 20170104
  Receipt Date: 20171010
  Transmission Date: 20180320
  Serious: Yes (Other)
  Sender: FDA-Public Use
  Company Number: JP-VIFOR (INTERNATIONAL) INC.-VIT-2016-09218

PATIENT
  Age: 63 Year
  Sex: Male
  Weight: 60.9 kg

DRUGS (19)
  1. MAINTATE [Suspect]
     Active Substance: BISOPROLOL FUMARATE
     Route: 048
     Dates: end: 20161018
  2. MUCOSTA [Concomitant]
     Active Substance: REBAMIPIDE
     Route: 048
  3. FOSRENOL [Concomitant]
     Active Substance: LANTHANUM CARBONATE
     Indication: HYPERPHOSPHATAEMIA
     Route: 048
     Dates: end: 20161003
  4. MICARDIS [Concomitant]
     Active Substance: TELMISARTAN
     Route: 048
  5. ARTIST [Concomitant]
     Active Substance: CARVEDILOL
     Route: 048
     Dates: start: 20161018
  6. EPOETIN ALFA [Concomitant]
     Active Substance: ERYTHROPOIETIN
     Dates: start: 20161019, end: 20161123
  7. EPOETIN ALFA [Concomitant]
     Active Substance: ERYTHROPOIETIN
     Dates: start: 20170111
  8. VELPHORO [Suspect]
     Active Substance: FERRIC OXYHYDROXIDE
     Indication: HYPERPHOSPHATAEMIA
     Route: 048
     Dates: start: 20160921, end: 20160925
  9. SUNRYTHM [Suspect]
     Active Substance: PILSICAINIDE HYDROCHLORIDE
     Indication: ATRIAL FIBRILLATION
     Route: 048
     Dates: end: 20161007
  10. FOSRENOL [Concomitant]
     Active Substance: LANTHANUM CARBONATE
  11. BAYASPIRIN [Concomitant]
     Active Substance: ASPIRIN
     Route: 048
  12. FESIN [Concomitant]
     Active Substance: IRON SUCROSE
     Dates: end: 20161010
  13. VELPHORO [Suspect]
     Active Substance: FERRIC OXYHYDROXIDE
     Dosage: NON-DIALYSIS DAY: 750MG/DAY, DIALYSIS DAY: 500MG/DAY
     Route: 048
     Dates: start: 20160926, end: 20170123
  14. THYRADIN S [Concomitant]
     Active Substance: LEVOTHYROXINE SODIUM
     Route: 048
  15. NORVASC [Concomitant]
     Active Substance: AMLODIPINE BESYLATE
     Route: 048
     Dates: end: 20161003
  16. CALCIUM CARBONATE. [Concomitant]
     Active Substance: CALCIUM CARBONATE
     Indication: HYPERPHOSPHATAEMIA
     Route: 048
  17. ZYLORIC [Concomitant]
     Active Substance: ALLOPURINOL
     Route: 048
  18. TAKEPRON [Concomitant]
     Active Substance: LANSOPRAZOLE
     Route: 048
  19. EPOETIN ALFA [Concomitant]
     Active Substance: ERYTHROPOIETIN
     Dates: start: 20161125, end: 20170111

REACTIONS (11)
  - Blood creatinine increased [Unknown]
  - Product physical issue [Unknown]
  - Aspartate aminotransferase increased [Recovering/Resolving]
  - Gamma-glutamyltransferase increased [Recovering/Resolving]
  - Bradycardia [Recovered/Resolved]
  - Shunt stenosis [Recovered/Resolved]
  - Hypocalcaemia [Recovered/Resolved]
  - Condition aggravated [Recovered/Resolved]
  - Serum ferritin increased [Recovering/Resolving]
  - Diarrhoea [Recovering/Resolving]
  - Condition aggravated [Recovered/Resolved]

NARRATIVE: CASE EVENT DATE: 20160926
